FAERS Safety Report 10344177 (Version 5)
Quarter: 2015Q1

REPORT INFORMATION
  Report Type: Report from Study
  Country: UA (occurrence: UA)
  Receive Date: 20140728
  Receipt Date: 20150218
  Transmission Date: 20150720
  Serious: Yes (Death, Disabling)
  Sender: FDA-Public Use
  Company Number: UA-ROCHE-1437820

PATIENT
  Age: 65 Year
  Sex: Male
  Weight: 57 kg

DRUGS (20)
  1. CISPLATIN. [Suspect]
     Active Substance: CISPLATIN
     Indication: HER-2 POSITIVE GASTRIC CANCER
     Dosage: DATE OF MOST RECENT DOSE  PRIOR TO AE ONSET: 07/MAR/2014; TOTAL DOSE : 99.6 MG
     Route: 042
     Dates: start: 20140307
  2. ZOFRAN [Concomitant]
     Active Substance: ONDANSETRON HYDROCHLORIDE
     Route: 065
     Dates: start: 20140310, end: 20140310
  3. CAPECITABINE. [Suspect]
     Active Substance: CAPECITABINE
     Indication: HER-2 POSITIVE GASTRIC CANCER
     Dosage: DATE OF MOST RECENT DOSE PRIOR TO SAE: 21/MAR/2014; TOTAL DAILY DOSE :  2500 MG
     Route: 048
     Dates: start: 20140307
  4. FUROSEMID [Concomitant]
     Active Substance: FUROSEMIDE
     Indication: CHRONIC KIDNEY DISEASE
     Route: 042
     Dates: start: 20140407
  5. ZOFRAN [Concomitant]
     Active Substance: ONDANSETRON HYDROCHLORIDE
     Route: 065
     Dates: start: 20140402, end: 20140402
  6. TRASTUZUMAB [Suspect]
     Active Substance: TRASTUZUMAB
     Dosage: MAINTENANCE DOSE ; TOTAL DOSE OF 570 MG; MOST RECENT DOSE PRIOR TO SAE: 28/MAR/2014
     Route: 042
     Dates: start: 20140328
  7. ZOFRAN [Concomitant]
     Active Substance: ONDANSETRON HYDROCHLORIDE
     Route: 065
     Dates: start: 20140406, end: 20140406
  8. HEPTRAL [Concomitant]
     Active Substance: ADEMETIONINE
     Indication: HEPATORENAL SYNDROME
     Route: 065
     Dates: start: 20140307
  9. TORASEMID [Concomitant]
     Active Substance: TORSEMIDE
     Indication: CHRONIC KIDNEY DISEASE
     Route: 065
     Dates: start: 20140307
  10. DIMEDROL [Concomitant]
     Active Substance: DIPHENHYDRAMINE
     Route: 065
     Dates: start: 20140307, end: 20140307
  11. METOCLOPRAMID [Concomitant]
     Active Substance: METOCLOPRAMIDE
     Route: 065
     Dates: start: 20140307
  12. SODIUM CHLORIDE. [Concomitant]
     Active Substance: SODIUM CHLORIDE
     Route: 065
     Dates: start: 20140307, end: 20140307
  13. DIMEDROL [Concomitant]
     Active Substance: DIPHENHYDRAMINE
     Route: 065
     Dates: start: 20140328, end: 20140328
  14. TRASTUZUMAB [Suspect]
     Active Substance: TRASTUZUMAB
     Indication: HER-2 POSITIVE GASTRIC CANCER
     Dosage: LOADING DOSE; DATE OF MOST RECENT DOSE PRIOR TO SAE: 28/MAR/2014
     Route: 042
     Dates: start: 20140307
  15. SODIUM CHLORIDE. [Concomitant]
     Active Substance: SODIUM CHLORIDE
     Route: 065
     Dates: start: 20140328, end: 20140328
  16. TRENTAL [Concomitant]
     Active Substance: PENTOXIFYLLINE
     Route: 065
     Dates: start: 20140328, end: 20140328
  17. ACUPAN [Concomitant]
     Active Substance: NEFOPAM HYDROCHLORIDE
     Indication: ABDOMINAL PAIN
     Route: 065
     Dates: start: 20140217
  18. ASPARKAM [Concomitant]
     Indication: PROPHYLAXIS
     Route: 065
     Dates: start: 20140307
  19. ZOFRAN [Concomitant]
     Active Substance: ONDANSETRON HYDROCHLORIDE
     Indication: NAUSEA
     Route: 065
     Dates: start: 20140328, end: 20140328
  20. ZOFRAN [Concomitant]
     Active Substance: ONDANSETRON HYDROCHLORIDE
     Route: 065
     Dates: start: 20140318, end: 20140318

REACTIONS (3)
  - Chronic kidney disease [Not Recovered/Not Resolved]
  - Lymphostasis [Fatal]
  - Oedema peripheral [Fatal]

NARRATIVE: CASE EVENT DATE: 20140327
